FAERS Safety Report 23379268 (Version 1)
Quarter: 2024Q1

REPORT INFORMATION
  Report Type: Spontaneous
  Country: US (occurrence: None)
  Receive Date: 20240107
  Receipt Date: 20240107
  Transmission Date: 20240410
  Serious: No
  Sender: FDA-Public Use
  Company Number: None

PATIENT
  Age: 53 Year
  Sex: Female
  Weight: 54 kg

DRUGS (16)
  1. XIIDRA [Suspect]
     Active Substance: LIFITEGRAST
     Indication: Dry eye
     Dosage: 60 DROPS TWICE A DAY OPHTHALMIC
     Route: 047
  2. OZEMPIC [Concomitant]
     Active Substance: SEMAGLUTIDE
  3. TRAZODONE [Concomitant]
     Active Substance: TRAZODONE HYDROCHLORIDE
  4. TRINTELLIX [Concomitant]
     Active Substance: VORTIOXETINE HYDROBROMIDE
  5. LORAZEPAM [Concomitant]
     Active Substance: LORAZEPAM
  6. LAMOTRIGINE [Concomitant]
     Active Substance: LAMOTRIGINE
  7. omeprozol [Concomitant]
  8. FLONASE [Concomitant]
     Active Substance: FLUTICASONE PROPIONATE
  9. VICKS DAYQUIL [Concomitant]
     Active Substance: DEXTROMETHORPHAN HYDROBROMIDE\GUAIFENESIN
  10. GUAIFENESIN [Concomitant]
     Active Substance: GUAIFENESIN
  11. sudefed [Concomitant]
  12. AFRIN [Concomitant]
     Active Substance: OXYMETAZOLINE
  13. VITAMIN C [Concomitant]
     Active Substance: ASCORBIC ACID
  14. VITAMIN B COMPLEX [Concomitant]
     Active Substance: CYANOCOBALAMIN\DEXPANTHENOL\NIACINAMIDE\PYRIDOXINE HYDROCHLORIDE\RIBOFLAVIN 5^-PHOSPHATE SODIUM\THIA
  15. ZINC [Concomitant]
     Active Substance: PYRITHIONE ZINC\ZINC\ZINC CHLORIDE
  16. VITAMINS [Concomitant]
     Active Substance: VITAMINS

REACTIONS (6)
  - Eyelid margin crusting [None]
  - Eye disorder [None]
  - Vision blurred [None]
  - Ocular hyperaemia [None]
  - Ear pain [None]
  - Sinusitis [None]

NARRATIVE: CASE EVENT DATE: 20231206
